FAERS Safety Report 24754151 (Version 7)
Quarter: 2025Q1

REPORT INFORMATION
  Report Type: Spontaneous
  Country: FR (occurrence: FR)
  Receive Date: 20241219
  Receipt Date: 20250131
  Transmission Date: 20250408
  Serious: Yes (Hospitalization, Other)
  Sender: PFIZER
  Company Number: None

PATIENT
  Age: 83 Year
  Sex: Female
  Weight: 51 kg

DRUGS (14)
  1. ELIQUIS [Suspect]
     Active Substance: APIXABAN
     Indication: Atrial fibrillation
     Dosage: 10 MG, 1X/DAY
     Route: 048
     Dates: start: 2016
  2. SPIRONOLACTONE [Suspect]
     Active Substance: SPIRONOLACTONE
     Indication: Hypertension
     Dosage: 25 MG, 1X/DAY
     Route: 048
     Dates: end: 20241112
  3. TRIMEBUTINE MALEATE [Suspect]
     Active Substance: TRIMEBUTINE MALEATE
     Dosage: 300 MG, 1X/DAY
     Route: 048
     Dates: end: 20241112
  4. TRIMEBUTINE MALEATE [Suspect]
     Active Substance: TRIMEBUTINE MALEATE
     Route: 048
     Dates: start: 20241112
  5. PANTOPRAZOLE [Suspect]
     Active Substance: PANTOPRAZOLE
     Dosage: 40 MILLIGRAM, QD
     Route: 048
  6. TRANXENE [Suspect]
     Active Substance: CLORAZEPATE DIPOTASSIUM
     Indication: Anxiety
     Dosage: 10 TO 40MG, 1X/DAY
     Route: 048
     Dates: start: 1988, end: 20241112
  7. LOPERAMIDE HYDROCHLORIDE [Suspect]
     Active Substance: LOPERAMIDE HYDROCHLORIDE
     Dosage: 2 MG, 1X/DAY
     Route: 048
     Dates: start: 20241112, end: 20241112
  8. DICLOFENAC [Suspect]
     Active Substance: DICLOFENAC
     Indication: Pain
     Route: 003
     Dates: end: 20241112
  9. FENTANYL [Suspect]
     Active Substance: FENTANYL
     Indication: Pain
     Route: 062
     Dates: start: 2016
  10. PROPRANOLOL [Concomitant]
     Active Substance: PROPRANOLOL HYDROCHLORIDE
     Route: 065
  11. MIANSERIN HYDROCHLORIDE [Concomitant]
     Active Substance: MIANSERIN HYDROCHLORIDE
     Route: 065
  12. PREDNISONE [Concomitant]
     Active Substance: PREDNISONE
  13. LEVOTHYROXINE SODIUM [Concomitant]
     Active Substance: LEVOTHYROXINE SODIUM
  14. ACETAMINOPHEN [Concomitant]
     Active Substance: ACETAMINOPHEN

REACTIONS (3)
  - Fall [Recovering/Resolving]
  - Traumatic haematoma [Recovering/Resolving]
  - Anaemia [Recovered/Resolved]

NARRATIVE: CASE EVENT DATE: 20241112
